FAERS Safety Report 24018125 (Version 1)
Quarter: 2024Q2

REPORT INFORMATION
  Report Type: Spontaneous
  Country: US (occurrence: US)
  Receive Date: 20240627
  Receipt Date: 20240627
  Transmission Date: 20240716
  Serious: No
  Sender: FDA-Public Use
  Company Number: US-AJANTA-2024AJA00032

PATIENT

DRUGS (7)
  1. DULOXETINE [Suspect]
     Active Substance: DULOXETINE
     Indication: Neuropathy peripheral
     Dates: start: 20240221, end: 20240221
  2. DULOXETINE [Suspect]
     Active Substance: DULOXETINE
     Indication: Depression
  3. ASPIRIN [Concomitant]
     Active Substance: ASPIRIN
  4. RYBELSUS [Concomitant]
     Active Substance: SEMAGLUTIDE
     Indication: Diabetes mellitus
  5. AMLODIPINE [Concomitant]
     Active Substance: AMLODIPINE BESYLATE
  6. LOSARTAN POTASSIUM [Concomitant]
     Active Substance: LOSARTAN POTASSIUM
  7. PRAVASTATIN [Concomitant]
     Active Substance: PRAVASTATIN

REACTIONS (4)
  - Malaise [Unknown]
  - Dizziness [Unknown]
  - Dry mouth [Unknown]
  - Headache [Unknown]

NARRATIVE: CASE EVENT DATE: 20240221
